FAERS Safety Report 21216791 (Version 1)
Quarter: 2022Q3

REPORT INFORMATION
  Report Type: Spontaneous
  Country: US (occurrence: US)
  Receive Date: 20220816
  Receipt Date: 20220816
  Transmission Date: 20221026
  Serious: No
  Sender: FDA-Public Use
  Company Number: US-STRIDES ARCOLAB LIMITED-2022SP009921

PATIENT

DRUGS (1)
  1. RANITIDINE [Suspect]
     Active Substance: RANITIDINE
     Indication: Product used for unknown indication
     Dosage: UNK,(TABLET, IMMEDIATE RELASE)
     Route: 065

REACTIONS (2)
  - Diarrhoea [Unknown]
  - Product colour issue [Unknown]

NARRATIVE: CASE EVENT DATE: 20191101
